FAERS Safety Report 13620558 (Version 2)
Quarter: 2017Q2

REPORT INFORMATION
  Report Type: Report from Study
  Country: CA (occurrence: CA)
  Receive Date: 20170607
  Receipt Date: 20170620
  Transmission Date: 20170830
  Serious: Yes (Disabling)
  Sender: FDA-Public Use
  Company Number: CA-AMGEN-CANSL2017085283

PATIENT
  Age: 56 Year
  Sex: Male
  Weight: 60.9 kg

DRUGS (3)
  1. KYPROLIS [Suspect]
     Active Substance: CARFILZOMIB
     Indication: PLASMA CELL MYELOMA
     Dosage: 95 MG, CYCLICAL
     Route: 042
     Dates: start: 20170517
  2. DEXAMETHASONE. [Concomitant]
     Active Substance: DEXAMETHASONE
     Dosage: 20 MG, CYCLICAL
     Dates: start: 20170517
  3. HYDROMORPH [Concomitant]
     Active Substance: HYDROMORPHONE
     Dosage: 15 MG, BID

REACTIONS (3)
  - Nausea [Recovered/Resolved]
  - Malaise [Recovered/Resolved]
  - Influenza like illness [Recovered/Resolved]

NARRATIVE: CASE EVENT DATE: 20170526
